FAERS Safety Report 9618768 (Version 1)
Quarter: 2013Q4

REPORT INFORMATION
  Report Type: Spontaneous
  Country: DE (occurrence: DE)
  Receive Date: 20131014
  Receipt Date: 20131014
  Transmission Date: 20140711
  Serious: Yes (Other)
  Sender: FDA-Public Use
  Company Number: DE-RANBAXY-2013RR-73818

PATIENT
  Age: 25 Year
  Sex: Male

DRUGS (2)
  1. CEFUROX BASICS 500 MG TABLETTEN [Suspect]
     Indication: NASOPHARYNGITIS
     Dosage: 1 DF, BID
     Route: 065
     Dates: start: 20130923, end: 20130928
  2. CEFUROX BASICS 500 MG TABLETTEN [Suspect]
     Indication: PRODUCTIVE COUGH

REACTIONS (2)
  - Hypertension [Unknown]
  - Heart rate increased [Unknown]
